FAERS Safety Report 7939054-4 (Version None)
Quarter: 2011Q4

REPORT INFORMATION
  Report Type: 
  Country: None (occurrence: None)
  Receive Date: 20111124
  Receipt Date: 20111122
  Transmission Date: 20120403
  Serious: Yes (Life-Threatening, Hospitalization, Other)
  Sender: FDA-Public Use
  Company Number: FR-PFIZER INC-2011237596

PATIENT
  Age: 58 Year
  Sex: Female

DRUGS (10)
  1. CLONAZEPAM [Suspect]
     Dosage: 20 GTT, 1X/DAY
     Route: 002
  2. PRAZEPAM [Suspect]
     Dosage: 10 MG, 3X/DAY
     Route: 002
  3. ATARAX [Concomitant]
     Dosage: 25 MG, 1X/DAY
  4. ZOPICLONE [Concomitant]
     Dosage: 1 DF, 1X/DAY
  5. LYRICA [Suspect]
     Dosage: 8200 MG, SINGLE
     Route: 002
     Dates: start: 20110525
  6. PRAZEPAM [Suspect]
     Dosage: 110 MG, SINGLE
     Route: 002
     Dates: start: 20110525
  7. CLONAZEPAM [Suspect]
     Dosage: 1 BOTTLE (2.5MG/ML)
     Route: 002
     Dates: start: 20110525
  8. LYRICA [Suspect]
     Dosage: 200 MG, 2X/DAY
  9. CYMBALTA [Concomitant]
     Dosage: 60 MG, 1X/DAY
  10. ACETAMINOPHEN AND TRAMADOL HCL [Suspect]
     Dosage: 67 DF, SINGLE (2.5 G OF TRAMADOL AND 22 G OF PARACETAMOL)
     Route: 002
     Dates: start: 20110525

REACTIONS (7)
  - POISONING DELIBERATE [None]
  - DEPRESSED LEVEL OF CONSCIOUSNESS [None]
  - RESPIRATORY ACIDOSIS [None]
  - HYPOTHERMIA [None]
  - BRADYPNOEA [None]
  - SUICIDE ATTEMPT [None]
  - CYTOLYTIC HEPATITIS [None]
